FAERS Safety Report 5817329-2 (Version None)
Quarter: 2008Q3

REPORT INFORMATION
  Report Type: 
  Country: None (occurrence: None)
  Receive Date: 20080715
  Receipt Date: 20080702
  Transmission Date: 20090109
  Serious: Yes (Other)
  Sender: FDA-Public Use
  Company Number: US023171

PATIENT

DRUGS (1)
  1. VIGIL /01265601 [Suspect]
     Dosage: ORAL
     Route: 048

REACTIONS (5)
  - DRUG ABUSE [None]
  - DRUG WITHDRAWAL SYNDROME [None]
  - HEADACHE [None]
  - INCORRECT ROUTE OF DRUG ADMINISTRATION [None]
  - INTENTIONAL OVERDOSE [None]
